FAERS Safety Report 20796901 (Version 1)
Quarter: 2022Q2

REPORT INFORMATION
  Report Type: Spontaneous
  Country: JP (occurrence: JP)
  Receive Date: 20220506
  Receipt Date: 20220506
  Transmission Date: 20220720
  Serious: Yes (Hospitalization)
  Sender: FDA-Public Use
  Company Number: JP-ALLERGAN-2214586US

PATIENT
  Sex: Male

DRUGS (4)
  1. ASENAPINE MALEATE [Suspect]
     Active Substance: ASENAPINE MALEATE
     Indication: Schizophrenia
     Dosage: UNK
     Route: 060
  2. BREXPIPRAZOLE [Concomitant]
     Active Substance: BREXPIPRAZOLE
  3. BLONANSERIN [Concomitant]
     Active Substance: BLONANSERIN
     Dosage: UNK
  4. BLONANSERIN [Concomitant]
     Active Substance: BLONANSERIN
     Dosage: UNK

REACTIONS (4)
  - Water intoxication [Unknown]
  - Palpitations [Unknown]
  - Delusion [Unknown]
  - Anxiety [Unknown]

NARRATIVE: CASE EVENT DATE: 20190401
